FAERS Safety Report 5362628-4 (Version None)
Quarter: 2007Q2

REPORT INFORMATION
  Report Type: 
  Country: None (occurrence: None)
  Receive Date: 20070619
  Receipt Date: 20070607
  Transmission Date: 20071010
  Serious: Yes (Hospitalization, Other)
  Sender: FDA-Public Use
  Company Number: US-PFIZER INC-2006071502

PATIENT
  Sex: Male
  Weight: 70.3 kg

DRUGS (1)
  1. CELEBREX [Suspect]
     Indication: ARTHRALGIA

REACTIONS (7)
  - CEREBROVASCULAR ACCIDENT [None]
  - GASTROENTERITIS [None]
  - HYPERTENSIVE HEART DISEASE [None]
  - PANCREATITIS [None]
  - RENAL FAILURE ACUTE [None]
  - SKIN DISORDER [None]
  - SYNCOPE [None]
